FAERS Safety Report 4428250-9 (Version None)
Quarter: 2004Q3

REPORT INFORMATION
  Report Type: 
  Country: None (occurrence: None)
  Receive Date: 20040813
  Receipt Date: 20040805
  Transmission Date: 20050211
  Serious: Yes (Hospitalization)
  Sender: FDA-Public Use
  Company Number: K200401172

PATIENT
  Age: 76 Year
  Sex: Female

DRUGS (2)
  1. ALTACE [Suspect]
     Dosage: ORAL
     Route: 048
     Dates: start: 20030510, end: 20040610
  2. PRACTAZIN (SPIRONOLACTONE, ALTIZIDE) TABLET [Concomitant]

REACTIONS (5)
  - BIOPSY BRONCHUS ABNORMAL [None]
  - EOSINOPHILIA [None]
  - METAPLASIA [None]
  - PNEUMONITIS [None]
  - PULMONARY FIBROSIS [None]
